FAERS Safety Report 5941362-3 (Version None)
Quarter: 2008Q4

REPORT INFORMATION
  Report Type: 
  Country: None (occurrence: None)
  Receive Date: 20081103
  Receipt Date: 20081023
  Transmission Date: 20090506
  Serious: Yes (Disabling)
  Sender: FDA-Public Use
  Company Number: 100#03#2008-05464

PATIENT
  Age: 89 Year
  Sex: Female

DRUGS (8)
  1. ALENDRONATE ACID (ALENDRONIC ACID) [Suspect]
     Indication: OSTEOPOROSIS
     Dosage: 70 MG ONCE WEEKLY
     Route: 048
     Dates: start: 20070627, end: 20080801
  2. ADCAL-D3 (CHOLECALCIFEROL, CALCIUM CARBONATE) [Concomitant]
  3. FUROSEMIDE [Concomitant]
  4. GLYCERYL TRINITRATE (GLYCERYL TRINITRATE) [Concomitant]
  5. LANSOPRAZOLE [Concomitant]
  6. LOSARTAN POTASSIUM [Concomitant]
  7. SIMVASTATIN [Concomitant]
  8. VALPROIC ACID [Concomitant]

REACTIONS (3)
  - EYE PAIN [None]
  - RETINAL VEIN OCCLUSION [None]
  - SCLERITIS [None]
